FAERS Safety Report 12708296 (Version 3)
Quarter: 2017Q3

REPORT INFORMATION
  Report Type: Spontaneous
  Country: US (occurrence: US)
  Receive Date: 20160901
  Receipt Date: 20170906
  Transmission Date: 20171127
  Serious: Yes (Hospitalization, Other)
  Sender: FDA-Public Use
  Company Number: US-BAYER-2016-165394

PATIENT
  Age: 64 Year
  Sex: Female
  Weight: 88.5 kg

DRUGS (10)
  1. LISINOPRIL. [Concomitant]
     Active Substance: LISINOPRIL
     Dosage: 5 MG, UNK
  2. TEMOVATE [Concomitant]
     Active Substance: CLOBETASOL PROPIONATE
     Dosage: UNK UNK, BID
  3. SPORANOX [Concomitant]
     Active Substance: ITRACONAZOLE
  4. DULCOLAX (BISACODYL) [Concomitant]
     Active Substance: BISACODYL
  5. RID 1-2-3 SYSTEM [Suspect]
     Active Substance: PIPERONYL BUTOXIDE\PYRETHRUM EXTRACT
     Dosage: UNK
     Dates: start: 20141004, end: 20141004
  6. TYLENOL ACHES + STRAINS [Concomitant]
     Indication: PAIN
  7. DILAUDID [Concomitant]
     Active Substance: HYDROMORPHONE HYDROCHLORIDE
     Indication: PAIN
     Dosage: UNK UNK, PRN
  8. RESTORIL [Concomitant]
     Active Substance: TEMAZEPAM
  9. CIPROFLOXACIN. [Concomitant]
     Active Substance: CIPROFLOXACIN
  10. DAKINS FULL [Concomitant]
     Active Substance: SODIUM HYPOCHLORITE

REACTIONS (29)
  - Cellulitis [Recovering/Resolving]
  - Enterobacter infection [Recovering/Resolving]
  - Skin graft [Recovering/Resolving]
  - Skin lesion [Recovering/Resolving]
  - Septic arthritis streptococcal [Recovering/Resolving]
  - Peripheral swelling [Recovering/Resolving]
  - Oedema peripheral [Recovering/Resolving]
  - Chemical burn [Recovering/Resolving]
  - Skin discolouration [Recovering/Resolving]
  - Renal failure [Recovering/Resolving]
  - Rash pustular [Recovering/Resolving]
  - Hypoaesthesia [Recovering/Resolving]
  - Joint range of motion decreased [Recovering/Resolving]
  - Rash [Recovering/Resolving]
  - Musculoskeletal disorder [Recovering/Resolving]
  - Necrosis [Recovering/Resolving]
  - Myositis [Recovering/Resolving]
  - Eschar [Recovering/Resolving]
  - Pain [Recovering/Resolving]
  - Blister [Recovering/Resolving]
  - Localised infection [Recovering/Resolving]
  - Musculoskeletal pain [Recovering/Resolving]
  - Condition aggravated [Recovering/Resolving]
  - Abscess [Recovering/Resolving]
  - Skin necrosis [Recovering/Resolving]
  - Localised infection [Recovering/Resolving]
  - Chills [Recovering/Resolving]
  - Impaired healing [Recovering/Resolving]
  - Purulent discharge [Recovering/Resolving]

NARRATIVE: CASE EVENT DATE: 201410
